FAERS Safety Report 5132801-9 (Version None)
Quarter: 2006Q4

REPORT INFORMATION
  Report Type: 
  Country: None (occurrence: None)
  Receive Date: 20061023
  Receipt Date: 20061012
  Transmission Date: 20070319
  Serious: Yes (Hospitalization)
  Sender: FDA-Public Use
  Company Number: CG-MERCK-0610USA10100

PATIENT
  Age: 21 Year
  Sex: Male

DRUGS (1)
  1. STROMECTOL [Suspect]
     Route: 048
     Dates: start: 20060501, end: 20060501

REACTIONS (4)
  - ASTHENIA [None]
  - HYPOTENSION [None]
  - OCULAR HYPERAEMIA [None]
  - PYREXIA [None]
